FAERS Safety Report 23497008 (Version 1)
Quarter: 2024Q1

REPORT INFORMATION
  Report Type: Spontaneous
  Country: US (occurrence: US)
  Receive Date: 20240208
  Receipt Date: 20240208
  Transmission Date: 20240409
  Serious: No
  Sender: FDA-Public Use
  Company Number: US-BAUSCH-BL-2024-001724

PATIENT
  Age: 46 Year
  Sex: Female

DRUGS (1)
  1. RETIN-A MICRO [Suspect]
     Active Substance: TRETINOIN
     Indication: Acne
     Route: 065
     Dates: start: 20240129, end: 20240130

REACTIONS (5)
  - Skin erosion [Unknown]
  - Dry skin [Unknown]
  - Skin exfoliation [Unknown]
  - Rash [Unknown]
  - Skin mass [Unknown]

NARRATIVE: CASE EVENT DATE: 20240130
